FAERS Safety Report 8078155-X (Version None)
Quarter: 2012Q1

REPORT INFORMATION
  Report Type: 
  Country: None (occurrence: None)
  Receive Date: 20120127
  Receipt Date: 20110223
  Transmission Date: 20120608
  Serious: No
  Sender: FDA-Public Use
  Company Number: US-ABBOTT-10P-163-0690492-00

PATIENT
  Sex: Female

DRUGS (17)
  1. HUMIRA [Suspect]
     Route: 058
  2. VITAMIN TAB [Concomitant]
     Indication: PRODUCT USED FOR UNKNOWN INDICATION
  3. PENTASA [Concomitant]
     Indication: PRODUCT USED FOR UNKNOWN INDICATION
  4. LOMOTIL [Concomitant]
     Indication: DIARRHOEA
  5. XANAX [Concomitant]
     Indication: ANXIETY
  6. IRON [Concomitant]
     Indication: GASTROINTESTINAL HAEMORRHAGE
  7. SYNTHROID [Concomitant]
     Indication: HYPOTHYROIDISM
  8. TOPROLOL [Concomitant]
     Indication: ARRHYTHMIA
  9. HUMIRA [Suspect]
     Indication: CROHN'S DISEASE
     Route: 058
     Dates: start: 20101118
  10. HUMIRA [Suspect]
     Route: 058
     Dates: start: 20101201
  11. MULTI-VITAMINS [Concomitant]
     Indication: VITAMIN SUPPLEMENTATION
  12. VALIUM [Concomitant]
     Indication: ANXIETY
  13. PROPRANOLOL [Concomitant]
     Indication: PRODUCT USED FOR UNKNOWN INDICATION
  14. HUMIRA [Suspect]
     Route: 058
  15. XANAX [Concomitant]
     Indication: INSOMNIA
  16. VITAMIN B-12 [Concomitant]
     Indication: PRODUCT USED FOR UNKNOWN INDICATION
  17. TRAZODONE HCL [Concomitant]
     Indication: INSOMNIA

REACTIONS (3)
  - INJECTION SITE PAIN [None]
  - ARTHRALGIA [None]
  - INJECTION SITE HAEMATOMA [None]
